FAERS Safety Report 17957634 (Version 1)
Quarter: 2020Q2

REPORT INFORMATION
  Report Type: Spontaneous
  Country: JP (occurrence: JP)
  Receive Date: 20200629
  Receipt Date: 20200629
  Transmission Date: 20200714
  Serious: Yes (Other)
  Sender: FDA-Public Use
  Company Number: JP-NOVOPROD-735905

PATIENT
  Age: 32 Year
  Sex: Female

DRUGS (11)
  1. NOVORAPID [Suspect]
     Active Substance: INSULIN ASPART
     Indication: TYPE 1 DIABETES MELLITUS
     Dosage: 25 IU, QD (8-8-9)
     Route: 058
  2. NOVORAPID [Suspect]
     Active Substance: INSULIN ASPART
     Dosage: 40 IU, QD (12-14-14)
     Route: 058
  3. NOVORAPID [Suspect]
     Active Substance: INSULIN ASPART
     Dosage: 54 IU, QD (18-18-18)
     Route: 058
  4. NOVORAPID [Suspect]
     Active Substance: INSULIN ASPART
     Dosage: 30 IU, QD (10-10-10)
     Route: 058
  5. LEVEMIR [Suspect]
     Active Substance: INSULIN DETEMIR
     Dosage: 32 IU, QD (16-0-16)
     Route: 058
  6. LEVEMIR [Suspect]
     Active Substance: INSULIN DETEMIR
     Dosage: 36 IU, QD (18-0-18)
     Route: 058
  7. NOVORAPID [Suspect]
     Active Substance: INSULIN ASPART
     Dosage: 36 IU, QD (12-12-12)
     Route: 058
  8. NOVORAPID [Suspect]
     Active Substance: INSULIN ASPART
     Dosage: 58 IU, QD (22-18-18)
     Route: 058
  9. LEVEMIR [Suspect]
     Active Substance: INSULIN DETEMIR
     Dosage: 28 IU, QD (14-0-14)
     Route: 058
  10. LEVEMIR [Suspect]
     Active Substance: INSULIN DETEMIR
     Dosage: 31 IU, QD (16-0-15)
     Route: 058
  11. LEVEMIR [Suspect]
     Active Substance: INSULIN DETEMIR
     Indication: TYPE 1 DIABETES MELLITUS
     Dosage: 26 IU, QD (13-0-13)
     Route: 058

REACTIONS (2)
  - Obstructed labour [Unknown]
  - Maternal exposure during pregnancy [Recovered/Resolved]
